FAERS Safety Report 12287324 (Version 1)
Quarter: 2016Q2

REPORT INFORMATION
  Report Type: Report from Study
  Country: US (occurrence: US)
  Receive Date: 20160420
  Receipt Date: 20160420
  Transmission Date: 20160815
  Serious: Yes (Other)
  Sender: FDA-Public Use
  Company Number: US-AMGEN-USASL2016048038

PATIENT
  Age: 73 Year
  Sex: Female

DRUGS (1)
  1. ENBREL [Suspect]
     Active Substance: ETANERCEPT
     Indication: RHEUMATOID ARTHRITIS
     Dosage: UNK
     Route: 065
     Dates: start: 20090801

REACTIONS (6)
  - Visual impairment [Unknown]
  - Chronic kidney disease [Unknown]
  - Psoriasis [Recovering/Resolving]
  - Psoriatic arthropathy [Unknown]
  - Osteoarthritis [Unknown]
  - Diabetes mellitus [Unknown]
